FAERS Safety Report 14473736 (Version 1)
Quarter: 2018Q1

REPORT INFORMATION
  Report Type: Spontaneous
  Country: US (occurrence: US)
  Receive Date: 20180201
  Receipt Date: 20180201
  Transmission Date: 20180509
  Serious: No
  Sender: FDA-Public Use
  Company Number: US-PFIZER INC-2018042833

PATIENT
  Age: 60 Year
  Sex: Female
  Weight: 66 kg

DRUGS (3)
  1. LETROZOLE. [Concomitant]
     Active Substance: LETROZOLE
     Indication: OESTROGEN THERAPY
     Dosage: UNK, 1X/DAY
  2. LYRICA [Suspect]
     Active Substance: PREGABALIN
     Indication: NEUROPATHY PERIPHERAL
     Dosage: 75 MG, 3X/DAY
     Route: 048
  3. LISINOPRIL. [Concomitant]
     Active Substance: LISINOPRIL
     Indication: BLOOD PRESSURE MANAGEMENT
     Dosage: 20 MG, 1X/DAY

REACTIONS (4)
  - White blood cell count decreased [Unknown]
  - Drug ineffective [Not Recovered/Not Resolved]
  - Weight increased [Unknown]
  - Herpes zoster [Unknown]
